FAERS Safety Report 13703155 (Version 1)
Quarter: 2017Q2

REPORT INFORMATION
  Report Type: Spontaneous
  Country: JP (occurrence: JP)
  Receive Date: 20170629
  Receipt Date: 20170629
  Transmission Date: 20170830
  Serious: Yes (Death, Hospitalization)
  Sender: FDA-Public Use
  Company Number: JP-PFIZER INC-2017279431

PATIENT
  Age: 72 Year
  Sex: Male

DRUGS (3)
  1. VANCOMYCIN HYDROCHLORIDE. [Concomitant]
     Active Substance: VANCOMYCIN HYDROCHLORIDE
     Indication: SEPSIS
     Dosage: UNK
  2. ZYVOX [Suspect]
     Active Substance: LINEZOLID
     Indication: SEPSIS
     Dosage: UNK
     Route: 065
  3. CARBENIN [Concomitant]
     Active Substance: BETAMIPRON\PANIPENEM
     Indication: SEPSIS
     Dosage: UNK

REACTIONS (1)
  - Platelet count decreased [Fatal]
